FAERS Safety Report 8571667-1 (Version None)
Quarter: 2012Q3

REPORT INFORMATION
  Report Type: 
  Country: None (occurrence: None)
  Receive Date: 20120806
  Receipt Date: 20120723
  Transmission Date: 20120928
  Serious: No
  Sender: FDA-Public Use
  Company Number: US-JNJFOC-20120712665

PATIENT
  Sex: Female
  Weight: 39.01 kg

DRUGS (3)
  1. DURAGESIC-100 [Suspect]
     Indication: BACK PAIN
     Route: 062
  2. CYMBALTA [Concomitant]
     Indication: DEPRESSION
     Route: 065
     Dates: start: 20120101
  3. PROZAC [Concomitant]
     Indication: DEPRESSION
     Route: 065
     Dates: end: 20120101

REACTIONS (2)
  - PANIC ATTACK [None]
  - DRUG DOSE OMISSION [None]
